FAERS Safety Report 7438967-X (Version None)
Quarter: 2011Q2

REPORT INFORMATION
  Report Type: 
  Country: None (occurrence: None)
  Receive Date: 20110426
  Receipt Date: 20110413
  Transmission Date: 20111010
  Serious: Yes (Other)
  Sender: FDA-Public Use
  Company Number: US-MYLANLABS-2011S1007916

PATIENT
  Age: 73 Year
  Sex: Male

DRUGS (7)
  1. ALLOPURINOL [Concomitant]
     Route: 065
  2. AZITHROMYCIN [Interacting]
     Dosage: 250 MG DAILY FOR NEXT 4 DAYS
     Route: 065
  3. LABETALOL [Concomitant]
     Route: 065
  4. SIMVASTATIN [Interacting]
     Dosage: 80 MG/DAY
     Route: 065
  5. BUMETANIDE [Concomitant]
     Route: 065
  6. AZITHROMYCIN [Suspect]
     Indication: BRONCHITIS
     Dosage: 500MG THEN 250 MG DAILY FOR NEXT 4 DAYS
     Route: 065
  7. PREDNISONE [Concomitant]
     Route: 065

REACTIONS (2)
  - RHABDOMYOLYSIS [None]
  - DRUG INTERACTION [None]
